FAERS Safety Report 22143942 (Version 2)
Quarter: 2023Q2

REPORT INFORMATION
  Report Type: Spontaneous
  Country: US (occurrence: US)
  Receive Date: 20230327
  Receipt Date: 20230404
  Transmission Date: 20230722
  Serious: Yes (Hospitalization, Other)
  Sender: FDA-Public Use
  Company Number: US-BRISTOL-MYERS SQUIBB COMPANY-2023-043162

PATIENT
  Age: 80 Year
  Sex: Male
  Weight: 106.59 kg

DRUGS (1)
  1. REVLIMID [Suspect]
     Active Substance: LENALIDOMIDE
     Indication: Myelodysplastic syndrome
     Dosage: FREQ: 21D ON 7D OFF
     Route: 048
     Dates: start: 20230301

REACTIONS (3)
  - Rash macular [Unknown]
  - Pneumonia [Unknown]
  - Petechiae [Unknown]
